FAERS Safety Report 4774548-4 (Version None)
Quarter: 2005Q3

REPORT INFORMATION
  Report Type: 
  Country: None (occurrence: None)
  Receive Date: 20050919
  Receipt Date: 20050919
  Transmission Date: 20060218
  Serious: Yes (Other)
  Sender: FDA-Public Use
  Company Number: None

PATIENT
  Age: 22 Year
  Sex: Female
  Weight: 58.9676 kg

DRUGS (2)
  1. YASMIN [Suspect]
     Indication: AMENORRHOEA
     Dosage: 1 TABLET 1 A DAY PO
     Route: 048
     Dates: start: 20050605, end: 20050901
  2. YASMIN [Suspect]
     Indication: CONTRACEPTION
     Dosage: 1 TABLET 1 A DAY PO
     Route: 048
     Dates: start: 20050605, end: 20050901

REACTIONS (5)
  - ANXIETY [None]
  - DYSPNOEA [None]
  - INSOMNIA [None]
  - PANIC ATTACK [None]
  - PARAESTHESIA [None]
